FAERS Safety Report 5364382-9 (Version None)
Quarter: 2007Q2

REPORT INFORMATION
  Report Type: 
  Country: None (occurrence: None)
  Receive Date: 20070618
  Receipt Date: 20070614
  Transmission Date: 20071010
  Serious: Yes (Hospitalization)
  Sender: FDA-Public Use
  Company Number: 2007SP011781

PATIENT
  Age: 59 Year
  Sex: Female
  Weight: 79.2 kg

DRUGS (1)
  1. TEMODAR [Suspect]
     Indication: GLIOBLASTOMA MULTIFORME
     Dosage: 190 MG; QD; PO
     Route: 048
     Dates: start: 20070530, end: 20070606

REACTIONS (2)
  - LUNG INFILTRATION [None]
  - PNEUMONITIS [None]
